FAERS Safety Report 4728639-4 (Version None)
Quarter: 2005Q3

REPORT INFORMATION
  Report Type: 
  Country: None (occurrence: None)
  Receive Date: 20050727
  Receipt Date: 20050711
  Transmission Date: 20060218
  Serious: Yes (Life-Threatening, Hospitalization, Other)
  Sender: FDA-Public Use
  Company Number: 2005PV000151

PATIENT
  Sex: Male

DRUGS (8)
  1. BYETTA [Suspect]
     Indication: DIABETES MELLITUS NON-INSULIN-DEPENDENT
     Dosage: 5 UG; BID; SC
     Route: 058
     Dates: start: 20050622, end: 20050628
  2. METFORMIN [Concomitant]
  3. ATORVASTATIN CALCIUM [Concomitant]
  4. NIACIN [Concomitant]
  5. ASPIRIN [Concomitant]
  6. FOLATE [Concomitant]
  7. VALSARTAN [Concomitant]
  8. HYDROCHLOROTHIAZIDE [Concomitant]

REACTIONS (2)
  - ACUTE MYOCARDIAL INFARCTION [None]
  - CARDIOMYOPATHY [None]
